FAERS Safety Report 4928054-4 (Version None)
Quarter: 2006Q1

REPORT INFORMATION
  Report Type: 
  Country: None (occurrence: None)
  Receive Date: 20060223
  Receipt Date: 20060214
  Transmission Date: 20060701
  Serious: Yes (Other)
  Sender: FDA-Public Use
  Company Number: 2006001479

PATIENT
  Age: 83 Year
  Sex: Female

DRUGS (1)
  1. XALATAN [Suspect]
     Indication: GLAUCOMA
     Dosage: 1 IN 1 D, OPHTHALMIC
     Route: 047
     Dates: start: 20050701, end: 20050101

REACTIONS (3)
  - BRONCHIECTASIS [None]
  - BRONCHITIS [None]
  - CONDITION AGGRAVATED [None]
